FAERS Safety Report 9889457 (Version 1)
Quarter: 2014Q1

REPORT INFORMATION
  Report Type: Report from Study
  Country: US (occurrence: US)
  Receive Date: 20140211
  Receipt Date: 20140211
  Transmission Date: 20141002
  Serious: Yes (Hospitalization, Other)
  Sender: FDA-Public Use
  Company Number: US-ABBVIE-14P-163-1197457-00

PATIENT
  Sex: Female

DRUGS (13)
  1. HUMIRA [Suspect]
     Indication: RHEUMATOID ARTHRITIS
  2. FOLIC ACID [Concomitant]
     Indication: PRODUCT USED FOR UNKNOWN INDICATION
  3. ATORVASTATIN [Concomitant]
     Indication: BLOOD CHOLESTEROL
  4. OXYBUTYNIN [Concomitant]
     Indication: HYPERTONIC BLADDER
  5. PAXIL [Concomitant]
     Indication: DEPRESSION
  6. WELLBUTRIN [Concomitant]
     Indication: DEPRESSION
  7. LYRICA [Concomitant]
     Indication: FIBROMYALGIA
  8. IBUPROFEN [Concomitant]
     Indication: RHEUMATOID ARTHRITIS
  9. OXYCODONE/APAP [Concomitant]
     Indication: PAIN
     Dosage: Q4H PRN
  10. AMBIEN [Concomitant]
     Indication: INSOMNIA
     Dosage: QHS
  11. XANAX [Concomitant]
     Indication: ANXIETY
  12. ANTACID [Concomitant]
     Indication: DYSPEPSIA
  13. PRILOSEC [Concomitant]
     Indication: DYSPEPSIA

REACTIONS (9)
  - Immunodeficiency [Not Recovered/Not Resolved]
  - Hallucination [Not Recovered/Not Resolved]
  - Cardiac disorder [Not Recovered/Not Resolved]
  - Local swelling [Not Recovered/Not Resolved]
  - Urinary tract infection [Not Recovered/Not Resolved]
  - Pyrexia [Not Recovered/Not Resolved]
  - Palpitations [Not Recovered/Not Resolved]
  - Pain in extremity [Not Recovered/Not Resolved]
  - Pain [Not Recovered/Not Resolved]
